FAERS Safety Report 4294775-2 (Version None)
Quarter: 2004Q1

REPORT INFORMATION
  Report Type: 
  Country: None (occurrence: None)
  Receive Date: 20040213
  Receipt Date: 20040206
  Transmission Date: 20041129
  Serious: Yes (Hospitalization, Other)
  Sender: FDA-Public Use
  Company Number: WAES 0402CHE00009

PATIENT
  Age: 30 Year
  Sex: Male

DRUGS (7)
  1. DAFALGAN [Concomitant]
     Indication: PAIN
     Route: 048
     Dates: start: 20040101
  2. PRIMAXIN [Suspect]
     Indication: INFECTION
     Route: 042
     Dates: start: 20031227, end: 20040115
  3. DIAZEPAM [Concomitant]
     Indication: INSOMNIA
     Route: 048
  4. VOLTAREN [Concomitant]
     Indication: PAIN
     Route: 048
     Dates: start: 20040101, end: 20040116
  5. MIDAZOLAM [Concomitant]
     Indication: INSOMNIA
     Route: 048
  6. TRAMADOL HCL [Suspect]
     Indication: PAIN
     Route: 048
     Dates: start: 20010101, end: 20040101
  7. TRAMADOL HCL [Suspect]
     Route: 048
     Dates: start: 20040101

REACTIONS (8)
  - AMNESIA [None]
  - ARTHRALGIA [None]
  - CONVULSION [None]
  - DRUG ABUSER [None]
  - HYPERHIDROSIS [None]
  - PERIPHERAL COLDNESS [None]
  - TOXICOLOGIC TEST ABNORMAL [None]
  - TREMOR [None]
